FAERS Safety Report 6656367-7 (Version None)
Quarter: 2010Q1

REPORT INFORMATION
  Report Type: 
  Country: None (occurrence: None)
  Receive Date: 20100329
  Receipt Date: 20100323
  Transmission Date: 20100710
  Serious: Yes (Death, Hospitalization)
  Sender: FDA-Public Use
  Company Number: DE-SANOFI-AVENTIS-F04200900099

PATIENT
  Age: 48 Year
  Sex: Male
  Weight: 63 kg

DRUGS (6)
  1. OXALIPLATIN [Suspect]
     Indication: RECTAL CANCER
     Route: 041
     Dates: start: 20090820, end: 20090820
  2. OXALIPLATIN [Suspect]
     Route: 041
     Dates: start: 20090910, end: 20090910
  3. CAPECITABINE [Suspect]
     Indication: RECTAL CANCER
     Route: 048
     Dates: start: 20090820
  4. CAPECITABINE [Suspect]
     Route: 048
     Dates: start: 20090101, end: 20090910
  5. DARBEPOETIN ALFA [Concomitant]
     Indication: DRUG USE FOR UNKNOWN INDICATION
  6. METAMIZOLE [Concomitant]
     Indication: DRUG USE FOR UNKNOWN INDICATION

REACTIONS (6)
  - BACK PAIN [None]
  - DISTURBANCE IN ATTENTION [None]
  - MULTI-ORGAN FAILURE [None]
  - NECROTISING FASCIITIS [None]
  - SEPTIC SHOCK [None]
  - TUMOUR PERFORATION [None]
